FAERS Safety Report 7868095-0 (Version None)
Quarter: 2011Q4

REPORT INFORMATION
  Report Type: 
  Country: None (occurrence: None)
  Receive Date: 20111028
  Receipt Date: 20111017
  Transmission Date: 20120403
  Serious: Yes (Life-Threatening, Hospitalization, Other)
  Sender: FDA-Public Use
  Company Number: FR-PFIZER INC-2011262636

PATIENT
  Age: 35 Year
  Sex: Male

DRUGS (8)
  1. ACETAMINOPHEN [Suspect]
     Dosage: 30 G, UNK
     Route: 048
     Dates: start: 20110606
  2. RISPERDAL [Suspect]
     Dosage: 4 MG, 2X/DAY
     Route: 048
  3. CLONAZEPAM [Suspect]
     Dosage: 2 MG, 1X/DAY
     Route: 048
  4. IBUPROFEN [Suspect]
     Dosage: 10 DOSES
     Route: 048
     Dates: start: 20110606
  5. LEPTICUR [Suspect]
     Dosage: 450 MG, UNK
     Route: 048
     Dates: start: 20110606
  6. CLONAZEPAM [Suspect]
     Dosage: 220 MG, UNK
     Route: 048
     Dates: start: 20110606
  7. RISPERDAL [Suspect]
     Dosage: 120 MG, UNK
     Route: 048
     Dates: start: 20110606
  8. LEPTICUR [Suspect]
     Dosage: 10 MG, IN 1 DAY
     Route: 048

REACTIONS (4)
  - HEPATITIS FULMINANT [None]
  - MULTIPLE DRUG OVERDOSE INTENTIONAL [None]
  - SUICIDE ATTEMPT [None]
  - RENAL FAILURE [None]
